FAERS Safety Report 16022248 (Version 4)
Quarter: 2021Q4

REPORT INFORMATION
  Report Type: Spontaneous
  Country: CA (occurrence: CA)
  Receive Date: 20190301
  Receipt Date: 20211110
  Transmission Date: 20220303
  Serious: Yes (Other)
  Sender: FDA-Public Use
  Company Number: CA-AUROBINDO-AUR-APL-2019-010085

PATIENT
  Age: 25 Year
  Sex: Female

DRUGS (6)
  1. ARIPIPRAZOLE [Suspect]
     Active Substance: ARIPIPRAZOLE
     Indication: Schizophrenia
     Dosage: 1 DOSAGE FORM
     Route: 065
  2. ARIPIPRAZOLE [Suspect]
     Active Substance: ARIPIPRAZOLE
     Dosage: 1 DOSAGE FORM
     Route: 065
  3. ARIPIPRAZOLE [Suspect]
     Active Substance: ARIPIPRAZOLE
     Indication: Schizophrenia
     Dosage: UNK
     Route: 065
  4. QUETIAPINE [Suspect]
     Active Substance: QUETIAPINE
     Indication: Schizophrenia
     Dosage: UNK
     Route: 048
  5. ZIPRASIDONE [Suspect]
     Active Substance: ZIPRASIDONE
     Indication: Schizophrenia
     Dosage: UNK
     Route: 065
  6. ZYPREXA [Suspect]
     Active Substance: OLANZAPINE
     Indication: Schizophrenia
     Dosage: UNK
     Route: 065

REACTIONS (12)
  - Dyskinesia [Unknown]
  - Akathisia [Unknown]
  - Blood prolactin abnormal [Unknown]
  - Diabetes mellitus [Unknown]
  - Dyslipidaemia [Unknown]
  - Dystonia [Unknown]
  - Metabolic syndrome [Unknown]
  - Orthostatic hypertension [Unknown]
  - Parkinsonism [Unknown]
  - Sedation [Unknown]
  - Sexual dysfunction [Unknown]
  - Weight increased [Unknown]
